FAERS Safety Report 6339967-3 (Version None)
Quarter: 2009Q3

REPORT INFORMATION
  Report Type: 
  Country: None (occurrence: None)
  Receive Date: 20090903
  Receipt Date: 20090825
  Transmission Date: 20100115
  Serious: Yes (Hospitalization)
  Sender: FDA-Public Use
  Company Number: US-ASTRAZENECA-2009SE09627

PATIENT
  Age: 26538 Day
  Sex: Female
  Weight: 68 kg

DRUGS (5)
  1. ARIMIDEX [Suspect]
     Indication: BREAST CANCER
     Route: 048
     Dates: start: 20060701
  2. FOSAMAX [Concomitant]
  3. CALCIUM CITRATE [Concomitant]
  4. VIT D [Concomitant]
  5. PROBIOTICS [Concomitant]

REACTIONS (5)
  - ARTHRALGIA [None]
  - HOT FLUSH [None]
  - KIDNEY INFECTION [None]
  - RENAL CANCER [None]
  - URINARY TRACT OBSTRUCTION [None]
